FAERS Safety Report 9981217 (Version 1)
Quarter: 2014Q1

REPORT INFORMATION
  Report Type: Spontaneous
  Country: IT (occurrence: None)
  Receive Date: 20140305
  Receipt Date: 20140305
  Transmission Date: 20141002
  Serious: Yes (Other)
  Sender: FDA-Public Use
  Company Number: IT-ALKEM-000504

PATIENT
  Age: 29 Year
  Sex: Female

DRUGS (1)
  1. METFORMIN (METFORMIN) [Suspect]
     Indication: GLUCOSE TOLERANCE IMPAIRED

REACTIONS (5)
  - Rosacea [None]
  - Pruritus [None]
  - Rash papular [None]
  - Telangiectasia [None]
  - Lupus-like syndrome [None]
